FAERS Safety Report 19692519 (Version 3)
Quarter: 2021Q3

REPORT INFORMATION
  Report Type: Spontaneous
  Country: US (occurrence: US)
  Receive Date: 20210812
  Receipt Date: 20210922
  Transmission Date: 20211014
  Serious: No
  Sender: FDA-Public Use
  Company Number: US-JNJFOC-20210822721

PATIENT
  Age: 32 Year
  Sex: Male
  Weight: 105.33 kg

DRUGS (4)
  1. RISPERDAL CONSTA [Suspect]
     Active Substance: RISPERIDONE
  2. RISPERDAL CONSTA [Suspect]
     Active Substance: RISPERIDONE
  3. RISPERDAL CONSTA [Suspect]
     Active Substance: RISPERIDONE
     Indication: PRODUCT USED FOR UNKNOWN INDICATION
     Dosage: NDC: 5045830811
     Route: 030
     Dates: start: 20210623
  4. RISPERDAL CONSTA [Suspect]
     Active Substance: RISPERIDONE
     Dosage: NDC: 5045830811
     Route: 030
     Dates: start: 202010

REACTIONS (4)
  - Product container issue [Unknown]
  - Product physical consistency issue [Unknown]
  - Product dose omission issue [Unknown]
  - Syringe issue [Unknown]

NARRATIVE: CASE EVENT DATE: 20210809
